FAERS Safety Report 6746531-0 (Version None)
Quarter: 2010Q2

REPORT INFORMATION
  Report Type: 
  Country: None (occurrence: None)
  Receive Date: 20100528
  Receipt Date: 20091210
  Transmission Date: 20101027
  Serious: No
  Sender: FDA-Public Use
  Company Number: US-ASTRAZENECA-2010SE01278

PATIENT
  Age: 53 Year
  Sex: Female

DRUGS (3)
  1. PRILOSEC OTC [Suspect]
     Indication: GASTROOESOPHAGEAL REFLUX DISEASE
     Dosage: UNKNOWN
     Route: 048
     Dates: start: 20090530, end: 20091101
  2. THYROID THERAPY [Concomitant]
     Dosage: UNKNOWN
  3. PRENATAL VITAMINS                  /01549301/ [Concomitant]
     Dosage: UNKNOWN

REACTIONS (5)
  - DRUG INEFFECTIVE FOR UNAPPROVED INDICATION [None]
  - INAPPROPRIATE SCHEDULE OF DRUG ADMINISTRATION [None]
  - INCORRECT DRUG ADMINISTRATION DURATION [None]
  - NON-CARDIAC CHEST PAIN [None]
  - SENSATION OF FOREIGN BODY [None]
